FAERS Safety Report 9472166 (Version 1)
Quarter: 2013Q3

REPORT INFORMATION
  Report Type: Spontaneous
  Country: US (occurrence: None)
  Receive Date: 20130821
  Receipt Date: 20130821
  Transmission Date: 20140515
  Serious: No
  Sender: FDA-Public Use
  Company Number: None

PATIENT
  Sex: Female

DRUGS (1)
  1. CLINDAMYCIN [Suspect]
     Indication: ACNE
     Dosage: CLINDAMYCIN, AT BED TIME, TOPICAL GEL
     Route: 061
     Dates: start: 2009, end: 2010

REACTIONS (2)
  - Drug ineffective [None]
  - Product substitution issue [None]
